FAERS Safety Report 13115400 (Version 1)
Quarter: 2017Q1

REPORT INFORMATION
  Report Type: Spontaneous
  Country: US (occurrence: US)
  Receive Date: 20170113
  Receipt Date: 20170113
  Transmission Date: 20170428
  Serious: Yes (Hospitalization)
  Sender: FDA-Public Use
  Company Number: US-RELYPSA-RLY2017000049

PATIENT
  Sex: Male

DRUGS (19)
  1. NOVOLOG [Concomitant]
     Active Substance: INSULIN ASPART
  2. LEVOTHYROXINE SODIUM. [Concomitant]
     Active Substance: LEVOTHYROXINE SODIUM
  3. VELTASSA [Suspect]
     Active Substance: PATIROMER
     Indication: HYPERKALAEMIA
     Dosage: 8.4 G, QD
     Route: 048
     Dates: start: 20161015
  4. COENZYME Q10 [Concomitant]
     Active Substance: UBIDECARENONE
  5. BENICAR [Concomitant]
     Active Substance: OLMESARTAN MEDOXOMIL
  6. ALDACTONE [Concomitant]
     Active Substance: SPIRONOLACTONE
  7. AGGRENOX [Concomitant]
     Active Substance: ASPIRIN\DIPYRIDAMOLE
  8. CRESTOR [Concomitant]
     Active Substance: ROSUVASTATIN CALCIUM
  9. FOLIC ACID. [Concomitant]
     Active Substance: FOLIC ACID
  10. HYDRALAZINE HCL [Concomitant]
     Active Substance: HYDRALAZINE HYDROCHLORIDE
  11. METOPROLOL TARTRATE. [Concomitant]
     Active Substance: METOPROLOL TARTRATE
  12. VITAMIN D                          /00107901/ [Concomitant]
     Active Substance: ERGOCALCIFEROL
  13. NITROSTAT [Concomitant]
     Active Substance: NITROGLYCERIN
  14. CLOPIDOGREL BISULFATE. [Concomitant]
     Active Substance: CLOPIDOGREL BISULFATE
  15. FUROSEMIDE. [Concomitant]
     Active Substance: FUROSEMIDE
  16. LANTUS [Concomitant]
     Active Substance: INSULIN GLARGINE
  17. CLONIDINE HCL [Concomitant]
     Active Substance: CLONIDINE HYDROCHLORIDE
  18. TAMSULOSIN HCL [Concomitant]
     Active Substance: TAMSULOSIN
  19. FLAXSEED [Concomitant]
     Active Substance: FLAX SEED

REACTIONS (1)
  - Hospitalisation [Unknown]
